FAERS Safety Report 9079027 (Version 1)
Quarter: 2013Q1

REPORT INFORMATION
  Report Type: Report from Study
  Country: US (occurrence: US)
  Receive Date: 20130130
  Receipt Date: 20130130
  Transmission Date: 20140127
  Serious: No
  Sender: FDA-Public Use
  Company Number: US-ABBOTT-12P-163-0978545-00

PATIENT
  Sex: Female

DRUGS (15)
  1. HUMIRA [Suspect]
     Indication: RHEUMATOID ARTHRITIS
     Route: 058
  2. FOLIC ACID [Suspect]
     Indication: VITAMIN SUPPLEMENTATION
     Dates: end: 201208
  3. COMBIVENT [Concomitant]
     Indication: ASTHMA
  4. DIOVAN [Concomitant]
     Indication: HYPERTENSION
  5. EFFEXOR [Concomitant]
     Indication: DEPRESSION
  6. METFORMIN [Concomitant]
     Indication: DIABETES MELLITUS
  7. METHOTREXATE [Concomitant]
     Indication: RHEUMATOID ARTHRITIS
  8. NEBUMATONE [Concomitant]
     Indication: INFLAMMATION
  9. PERCOCET [Concomitant]
     Indication: PAIN
  10. PLAQUENIL [Concomitant]
     Indication: RHEUMATOID ARTHRITIS
  11. SINGULAIR [Concomitant]
     Indication: HYPERSENSITIVITY
  12. TEGRETOL [Concomitant]
     Indication: PRODUCT USED FOR UNKNOWN INDICATION
  13. THEOPHYLLINE [Concomitant]
     Indication: PRODUCT USED FOR UNKNOWN INDICATION
  14. ZANTAC [Concomitant]
     Indication: GASTROOESOPHAGEAL REFLUX DISEASE
  15. CLARITIN [Concomitant]
     Indication: HYPERSENSITIVITY

REACTIONS (1)
  - Rash pruritic [Unknown]
